FAERS Safety Report 11613963 (Version 3)
Quarter: 2017Q2

REPORT INFORMATION
  Report Type: Spontaneous
  Country: JP (occurrence: JP)
  Receive Date: 20151008
  Receipt Date: 20170601
  Transmission Date: 20170829
  Serious: Yes (Hospitalization, Other)
  Sender: FDA-Public Use
  Company Number: JP-GILEAD-2015-0175704

PATIENT
  Age: 65 Year
  Sex: Female

DRUGS (9)
  1. ENTECAVIR HYDRATE [Concomitant]
     Dosage: UNK
  2. ENTECAVIR HYDRATE [Concomitant]
     Dosage: 0.5 MG, 1D
  3. PREDNISOLONE. [Concomitant]
     Active Substance: PREDNISOLONE
     Dosage: UNK
  4. HEPSERA [Suspect]
     Active Substance: ADEFOVIR DIPIVOXIL
     Dosage: 10 MG, 1D
     Route: 048
  5. HEPSERA [Suspect]
     Active Substance: ADEFOVIR DIPIVOXIL
     Dosage: UNK
     Route: 048
  6. PREDNISOLONE. [Concomitant]
     Active Substance: PREDNISOLONE
     Indication: STILL^S DISEASE
     Dosage: 40 MG, UNK
  7. ENTECAVIR HYDRATE [Concomitant]
     Indication: HEPATITIS ACUTE
     Dosage: UNK
     Route: 065
  8. CYCLOPHOSPHAMIDE. [Concomitant]
     Active Substance: CYCLOPHOSPHAMIDE
     Indication: STILL^S DISEASE
     Dosage: 50 MG, UNK
  9. HEPSERA [Suspect]
     Active Substance: ADEFOVIR DIPIVOXIL
     Indication: CHRONIC HEPATITIS B
     Dosage: UNK
     Route: 048

REACTIONS (8)
  - Renal disorder [Recovering/Resolving]
  - Rib fracture [Unknown]
  - Fanconi syndrome acquired [Recovering/Resolving]
  - Lumbar vertebral fracture [Unknown]
  - Hypophosphataemia [Recovering/Resolving]
  - Hyperphosphaturia [Unknown]
  - Renal tubular necrosis [Unknown]
  - Fractured sacrum [Unknown]
